FAERS Safety Report 21428013 (Version 2)
Quarter: 2023Q2

REPORT INFORMATION
  Report Type: Spontaneous
  Country: US (occurrence: US)
  Receive Date: 20221008
  Receipt Date: 20230613
  Transmission Date: 20230721
  Serious: Yes (Other)
  Sender: FDA-Public Use
  Company Number: US-PURDUE-USA-2020-0201613

PATIENT
  Sex: Female

DRUGS (4)
  1. OXYCONTIN [Suspect]
     Active Substance: OXYCODONE HYDROCHLORIDE
     Indication: Product used for unknown indication
     Dosage: UNKNOWN
     Route: 048
  2. HYDROCODONE BITARTRATE AND ACETAMINOPHEN [Suspect]
     Active Substance: ACETAMINOPHEN\HYDROCODONE BITARTRATE
     Indication: Breast cancer
     Dosage: UNKNOWN
     Route: 048
     Dates: start: 2010, end: 2015
  3. PERCOCET [Suspect]
     Active Substance: ACETAMINOPHEN\OXYCODONE HYDROCHLORIDE
     Indication: Product used for unknown indication
     Dosage: UNKNOWN
     Route: 065
  4. VICODIN [Suspect]
     Active Substance: ACETAMINOPHEN\HYDROCODONE BITARTRATE
     Indication: Product used for unknown indication
     Dosage: UNKNOWN
     Route: 065

REACTIONS (13)
  - Suicidal ideation [Unknown]
  - Drug dependence [Unknown]
  - Depression [Unknown]
  - Dermatillomania [Unknown]
  - Disturbance in attention [Unknown]
  - Memory impairment [Unknown]
  - Decreased interest [Unknown]
  - Amnesia [Unknown]
  - Anxiety [Unknown]
  - Pain [Unknown]
  - Dizziness [Unknown]
  - Insomnia [Unknown]
  - Somnolence [Unknown]
